FAERS Safety Report 5764339-X (Version None)
Quarter: 2008Q2

REPORT INFORMATION
  Report Type: 
  Country: None (occurrence: None)
  Receive Date: 20080610
  Receipt Date: 20080514
  Transmission Date: 20081010
  Serious: No
  Sender: FDA-Public Use
  Company Number: US-BOEHRINGER INGELHEIM GMBH, GERMANY-2008-BP-07606BP

PATIENT
  Sex: Female

DRUGS (2)
  1. SPIRIVA [Suspect]
     Indication: CHRONIC OBSTRUCTIVE PULMONARY DISEASE
     Route: 055
     Dates: start: 20071201
  2. CPAP [Concomitant]
     Indication: SLEEP APNOEA SYNDROME

REACTIONS (3)
  - DRY MOUTH [None]
  - HERPES ZOSTER [None]
  - INCORRECT ROUTE OF DRUG ADMINISTRATION [None]
